FAERS Safety Report 17415004 (Version 1)
Quarter: 2020Q1

REPORT INFORMATION
  Report Type: Spontaneous
  Country: FR (occurrence: FR)
  Receive Date: 20200213
  Receipt Date: 20200213
  Transmission Date: 20200409
  Serious: Yes (Death, Hospitalization)
  Sender: FDA-Public Use
  Company Number: FR-ELI_LILLY_AND_COMPANY-FR202002004557

PATIENT
  Age: 70 Year
  Sex: Male
  Weight: 73 kg

DRUGS (17)
  1. ALIMTA [Suspect]
     Active Substance: PEMETREXED DISODIUM
     Indication: BRONCHIAL CARCINOMA
     Dosage: 500 MG, UNKNOWN
     Route: 042
     Dates: start: 20190809, end: 20190809
  2. PRIMPERAN [Concomitant]
     Active Substance: METOCLOPRAMIDE HYDROCHLORIDE
  3. CRESTOR [Concomitant]
     Active Substance: ROSUVASTATIN CALCIUM
  4. PHOSPHONEUROS [Concomitant]
     Active Substance: CALCIUM PHOSPHATE, DIBASIC, ANHYDROUS\MAGNESIUM GLYCEROPHOSPHATE\PHOSPHORIC ACID\SODIUM PHOSPHATE, DIBASIC
  5. LACTULOSE. [Concomitant]
     Active Substance: LACTULOSE
  6. CARBOPLATIN ACCORD [Suspect]
     Active Substance: CARBOPLATIN
     Indication: LUNG NEOPLASM MALIGNANT
     Dosage: 900 MG, UNKNOWN
     Route: 042
     Dates: start: 20190809, end: 20190809
  7. INNOHEP [Concomitant]
     Active Substance: TINZAPARIN SODIUM
  8. TRIATEC [RAMIPRIL] [Concomitant]
     Active Substance: RAMIPRIL
  9. AZANTAC [Concomitant]
     Active Substance: RANITIDINE HYDROCHLORIDE
  10. XATRAL [Concomitant]
     Active Substance: ALFUZOSIN
  11. TRAMADOL. [Concomitant]
     Active Substance: TRAMADOL
  12. LEVEMIR [Concomitant]
     Active Substance: INSULIN DETEMIR
  13. NOVORAPID [Concomitant]
     Active Substance: INSULIN ASPART
  14. PHYSIOTENS [Concomitant]
     Active Substance: MOXONIDINE
  15. KARDEGIC [Concomitant]
     Active Substance: ASPIRIN DL-LYSINE
  16. ACIDE FOLIQUE [Concomitant]
     Active Substance: FOLIC ACID
  17. LANSOYL [Concomitant]
     Active Substance: MINERAL OIL

REACTIONS (4)
  - Weight decreased [Fatal]
  - Asthenia [Fatal]
  - Off label use [Unknown]
  - Decreased appetite [Fatal]

NARRATIVE: CASE EVENT DATE: 201908
